FAERS Safety Report 15585039 (Version 4)
Quarter: 2018Q4

REPORT INFORMATION
  Report Type: Spontaneous
  Country: BE (occurrence: BE)
  Receive Date: 20181102
  Receipt Date: 20181218
  Transmission Date: 20190205
  Serious: Yes (Hospitalization, Other)
  Sender: FDA-Public Use
  Company Number: BE-SHIRE-BE201841614

PATIENT

DRUGS (1)
  1. ELAPRASE [Suspect]
     Active Substance: IDURSULFASE
     Indication: MUCOPOLYSACCHARIDOSIS II
     Dosage: INFUSION VIA A PORT-A-CATH
     Route: 065

REACTIONS (10)
  - Infection [Unknown]
  - Muscle tightness [Unknown]
  - Rash [Unknown]
  - Epilepsy [Unknown]
  - Dyskinesia [Unknown]
  - Device issue [Unknown]
  - Cyanosis [Unknown]
  - Respiratory arrest [Unknown]
  - Arrhythmia [Unknown]
  - Unresponsive to stimuli [Unknown]
